FAERS Safety Report 5692718-8 (Version None)
Quarter: 2008Q2

REPORT INFORMATION
  Report Type: 
  Country: None (occurrence: None)
  Receive Date: 20080401
  Receipt Date: 20080327
  Transmission Date: 20081010
  Serious: Yes (Death, Hospitalization)
  Sender: FDA-Public Use
  Company Number: T06-USA-00801-01

PATIENT
  Age: 82 Year
  Sex: Female
  Weight: 44.4525 kg

DRUGS (5)
  1. MEMANTINE HCL [Suspect]
     Indication: DEMENTIA ALZHEIMER'S TYPE
     Dosage: 28 MG QD
     Dates: start: 20050819, end: 20060216
  2. DONEPEZIL HCL [Concomitant]
  3. NORVASC [Concomitant]
  4. FOLIC ACID [Concomitant]
  5. MULTI-VITAMIN [Concomitant]

REACTIONS (9)
  - AMNESIA [None]
  - BEDRIDDEN [None]
  - BLINDNESS TRANSIENT [None]
  - BLOOD PRESSURE DIASTOLIC DECREASED [None]
  - BODY TEMPERATURE DECREASED [None]
  - CEREBROVASCULAR ACCIDENT [None]
  - HYPOTHYROIDISM [None]
  - RESTLESSNESS [None]
  - SKIN LACERATION [None]
